FAERS Safety Report 24006597 (Version 5)
Quarter: 2025Q2

REPORT INFORMATION
  Report Type: Report from Study
  Country: FR (occurrence: FR)
  Receive Date: 20240624
  Receipt Date: 20250526
  Transmission Date: 20250716
  Serious: Yes (Other)
  Sender: TAKEDA
  Company Number: FR-TAKEDA-2024TUS061345

PATIENT
  Sex: Male

DRUGS (2)
  1. IDURSULFASE [Suspect]
     Active Substance: IDURSULFASE
     Indication: Product used for unknown indication
  2. IDURSULFASE [Suspect]
     Active Substance: IDURSULFASE
     Dosage: 0.5 MILLIGRAM/KILOGRAM, 1/WEEK

REACTIONS (7)
  - Infusion site scab [Not Recovered/Not Resolved]
  - Infusion site haematoma [Not Recovered/Not Resolved]
  - Vascular device infection [Not Recovered/Not Resolved]
  - Device use issue [Not Recovered/Not Resolved]
  - Complication associated with device [Not Recovered/Not Resolved]
  - Vein rupture [Not Recovered/Not Resolved]
  - Poor venous access [Not Recovered/Not Resolved]
